FAERS Safety Report 7273301-X (Version None)
Quarter: 2011Q1

REPORT INFORMATION
  Report Type: 
  Country: None (occurrence: None)
  Receive Date: 20110203
  Receipt Date: 20101115
  Transmission Date: 20110831
  Serious: No
  Sender: FDA-Public Use
  Company Number: US-ABBOTT-10P-163-0685943-00

PATIENT
  Sex: Female
  Weight: 72.64 kg

DRUGS (2)
  1. SYNTHROID [Suspect]
     Indication: PRODUCT USED FOR UNKNOWN INDICATION
     Dates: start: 19980101
  2. UNKNOWN PAIN MEDICATIONS [Concomitant]
     Indication: RHEUMATOID ARTHRITIS

REACTIONS (3)
  - INCONTINENCE [None]
  - HYPERHIDROSIS [None]
  - CONSTIPATION [None]
